FAERS Safety Report 13303185 (Version 9)
Quarter: 2018Q2

REPORT INFORMATION
  Report Type: Spontaneous
  Country: US (occurrence: US)
  Receive Date: 20170307
  Receipt Date: 20180511
  Transmission Date: 20180711
  Serious: Yes (Hospitalization, Other)
  Sender: FDA-Public Use
  Company Number: US-TEVA-745500USA

PATIENT
  Age: 58 Year
  Sex: Female

DRUGS (19)
  1. PROGRAF [Interacting]
     Active Substance: TACROLIMUS\TACROLIMUS ANHYDROUS
     Indication: IMMUNOSUPPRESSION
     Dosage: 1 MILLIGRAM DAILY;
     Route: 048
     Dates: start: 201009
  2. PROGRAF [Interacting]
     Active Substance: TACROLIMUS\TACROLIMUS ANHYDROUS
     Route: 065
  3. SEROQUEL [Suspect]
     Active Substance: QUETIAPINE FUMARATE
     Indication: PRODUCT USED FOR UNKNOWN INDICATION
     Dosage: 12.5 MILLIGRAM DAILY; 12.5 MG AT BEDTIME
     Dates: start: 201709
  4. PROTONIX [Concomitant]
     Active Substance: PANTOPRAZOLE SODIUM
     Route: 065
  5. NADOLOL. [Concomitant]
     Active Substance: NADOLOL
     Route: 065
  6. COMPAZINE [Suspect]
     Active Substance: PROCHLORPERAZINE MALEATE
     Indication: PRODUCT USED FOR UNKNOWN INDICATION
     Route: 065
  7. ASA [Concomitant]
     Active Substance: ASPIRIN
     Route: 065
  8. NORVASC [Suspect]
     Active Substance: AMLODIPINE BESYLATE
     Indication: HYPERTENSION
     Dates: start: 201708
  9. MAGNESIUM OXIDE. [Concomitant]
     Active Substance: MAGNESIUM OXIDE
     Route: 065
  10. PHENERGAN [Suspect]
     Active Substance: PROMETHAZINE HYDROCHLORIDE
     Indication: PRODUCT USED FOR UNKNOWN INDICATION
     Route: 065
  11. ALPRAZOLAM. [Concomitant]
     Active Substance: ALPRAZOLAM
     Route: 065
  12. FLUCONAZOLE. [Suspect]
     Active Substance: FLUCONAZOLE
     Indication: FUNGAL INFECTION
     Route: 065
  13. TACROLIMUS. [Suspect]
     Active Substance: TACROLIMUS
     Indication: LIVER TRANSPLANT
     Dates: start: 201708, end: 201708
  14. XIFAXAN [Concomitant]
     Active Substance: RIFAXIMIN
     Route: 065
  15. OXYCODONE [Concomitant]
     Active Substance: OXYCODONE
     Route: 065
  16. ZOFRAN [Suspect]
     Active Substance: ONDANSETRON HYDROCHLORIDE
     Indication: ABDOMINAL DISCOMFORT
     Route: 065
  17. LACTULOSE. [Concomitant]
     Active Substance: LACTULOSE
     Route: 065
  18. VIMPAT [Concomitant]
     Active Substance: LACOSAMIDE
  19. PRAVASTATIN. [Concomitant]
     Active Substance: PRAVASTATIN
     Route: 065

REACTIONS (32)
  - Blood potassium decreased [Recovered/Resolved]
  - Aspiration [Unknown]
  - Decubitus ulcer [Unknown]
  - Blood pressure increased [Unknown]
  - Dry mouth [Not Recovered/Not Resolved]
  - Skin disorder [Recovering/Resolving]
  - Immunosuppressant drug level decreased [Unknown]
  - Asthenia [Unknown]
  - Hypopnoea [Unknown]
  - Dysphonia [Unknown]
  - Myocardial necrosis marker increased [Recovered/Resolved]
  - Hepatic failure [Unknown]
  - Renal failure [Unknown]
  - Blood creatinine increased [Recovered/Resolved]
  - Pneumonia aspiration [Unknown]
  - Haemoglobin decreased [Unknown]
  - Ulcer [Unknown]
  - Blood magnesium decreased [Recovered/Resolved]
  - Respiratory arrest [Recovered/Resolved]
  - Haematocrit decreased [Unknown]
  - Hypersensitivity [Unknown]
  - Electrocardiogram QT prolonged [Recovered/Resolved]
  - Myocardial infarction [Recovered/Resolved]
  - Blood sodium decreased [Unknown]
  - Drug interaction [Unknown]
  - Fluid overload [Recovered/Resolved]
  - Tardive dyskinesia [Recovered/Resolved]
  - Fungal infection [Recovered/Resolved]
  - Gastrointestinal disorder [Unknown]
  - Cough [Unknown]
  - Pneumothorax [Unknown]
  - Confusional state [Unknown]

NARRATIVE: CASE EVENT DATE: 201612
